FAERS Safety Report 7940904-6 (Version None)
Quarter: 2011Q4

REPORT INFORMATION
  Report Type: 
  Country: None (occurrence: None)
  Receive Date: 20111128
  Receipt Date: 20111114
  Transmission Date: 20120403
  Serious: No
  Sender: FDA-Public Use
  Company Number: US-B.I. PHARMACEUTICALS,INC./RIDGEFIELD-2011-BP-26122BP

PATIENT
  Sex: Male

DRUGS (10)
  1. AVODART [Concomitant]
     Indication: PROSTATOMEGALY
  2. FLOMAX [Concomitant]
     Indication: BLADDER DISORDER
  3. LISINOPRIL [Concomitant]
     Indication: HYPERTENSION
  4. FLOMAX [Concomitant]
     Indication: PROSTATOMEGALY
  5. TOVIAZ [Suspect]
     Indication: BLADDER DISORDER
     Dates: start: 20111001
  6. MULTIVITAMIN [Concomitant]
     Indication: SUPPLEMENTATION THERAPY
  7. AVODART [Concomitant]
     Indication: BLADDER DISORDER
  8. CARDOVAL [Concomitant]
     Indication: ATRIAL FIBRILLATION
  9. PRADAXA [Suspect]
     Indication: ATRIAL FIBRILLATION
     Dosage: 300 MG
     Route: 048
     Dates: start: 20111001
  10. SOTALOL HCL [Concomitant]
     Indication: ATRIAL FIBRILLATION

REACTIONS (6)
  - MUSCLE TIGHTNESS [None]
  - SWELLING FACE [None]
  - ODYNOPHAGIA [None]
  - PAROTID GLAND INFLAMMATION [None]
  - EXTERNAL EAR PAIN [None]
  - AURICULAR SWELLING [None]
